FAERS Safety Report 7563479-2 (Version None)
Quarter: 2011Q2

REPORT INFORMATION
  Report Type: 
  Country: None (occurrence: None)
  Receive Date: 20110622
  Receipt Date: 20110613
  Transmission Date: 20111010
  Serious: Yes (Hospitalization, Other)
  Sender: FDA-Public Use
  Company Number: US-ASTRAZENECA-2011SE35839

PATIENT
  Age: 47 Year
  Sex: Male

DRUGS (4)
  1. PROTONIX [Suspect]
     Indication: GASTROOESOPHAGEAL REFLUX DISEASE
     Route: 042
     Dates: start: 20100723, end: 20110422
  2. PROMETHAZINE HCL [Suspect]
     Indication: NAUSEA
     Dosage: 50 MG EVERY SIX HOURS AS NEEDED
     Route: 048
  3. DOXYCYCLINE CALCIUM [Suspect]
     Route: 048
     Dates: start: 20100101
  4. NEXIUM [Suspect]
     Indication: GASTROOESOPHAGEAL REFLUX DISEASE
     Route: 048

REACTIONS (5)
  - DEHYDRATION [None]
  - DRUG SCREEN POSITIVE [None]
  - HEAT STROKE [None]
  - DIVERTICULITIS [None]
  - DRUG INEFFECTIVE [None]
